FAERS Safety Report 5736614-6 (Version None)
Quarter: 2008Q2

REPORT INFORMATION
  Report Type: 
  Country: None (occurrence: None)
  Receive Date: 20080513
  Receipt Date: 20080508
  Transmission Date: 20081010
  Serious: Yes (Other)
  Sender: FDA-Public Use
  Company Number: US-ASTRAZENECA-2008UW04580

PATIENT
  Age: 774 Month
  Sex: Male

DRUGS (4)
  1. CRESTOR [Suspect]
     Indication: HYPERCHOLESTEROLAEMIA
     Route: 048
  2. CRESTOR [Suspect]
     Route: 048
     Dates: start: 20080401
  3. METOPROLOL TARTRATE [Concomitant]
  4. BENECAR [Concomitant]

REACTIONS (4)
  - ASTHENIA [None]
  - CORONARY ARTERY BYPASS [None]
  - FATIGUE [None]
  - MYALGIA [None]
